FAERS Safety Report 18373261 (Version 3)
Quarter: 2024Q2

REPORT INFORMATION
  Report Type: Report from Study
  Country: JP (occurrence: JP)
  Receive Date: 20201012
  Receipt Date: 20240528
  Transmission Date: 20240716
  Serious: Yes (Death, Hospitalization)
  Sender: FDA-Public Use
  Company Number: JP-PFIZER INC-2020389869

PATIENT
  Age: 80 Year
  Sex: Male

DRUGS (10)
  1. VYNDAQEL [Suspect]
     Active Substance: TAFAMIDIS MEGLUMINE
     Indication: Cardiac amyloidosis
     Dosage: 80 MG, 1X/DAY
     Route: 048
     Dates: start: 20191115, end: 20200605
  2. APIXABAN [Concomitant]
     Active Substance: APIXABAN
     Dosage: UNK
     Route: 048
     Dates: start: 20190809, end: 20200605
  3. PIMOBENDAN [Concomitant]
     Active Substance: PIMOBENDAN
     Dosage: UNK
     Route: 048
     Dates: start: 201906, end: 20200605
  4. TOLVAPTAN [Concomitant]
     Active Substance: TOLVAPTAN
     Dosage: UNK
     Route: 048
     Dates: start: 201810, end: 20200605
  5. FUROSEMIDE [Concomitant]
     Active Substance: FUROSEMIDE
     Dosage: UNK
     Route: 048
     Dates: start: 201810, end: 20200605
  6. SPIRONOLACTONE [Concomitant]
     Active Substance: SPIRONOLACTONE
     Dosage: UNK
     Route: 048
     Dates: start: 20190722, end: 20200605
  7. ROSUVASTATIN CALCIUM [Concomitant]
     Active Substance: ROSUVASTATIN CALCIUM
     Dosage: UNK
     Route: 048
     Dates: start: 201810, end: 20200605
  8. FEBUXOSTAT [Concomitant]
     Active Substance: FEBUXOSTAT
     Dosage: UNK
     Route: 048
     Dates: start: 201810, end: 20200605
  9. RABEPRAZOLE SODIUM [Concomitant]
     Active Substance: RABEPRAZOLE SODIUM
     Dosage: UNK
     Route: 048
     Dates: start: 201810, end: 20200605
  10. SODIUM FERROUS CITRATE [Concomitant]
     Active Substance: SODIUM FERROUS CITRATE
     Dosage: UNK
     Route: 048
     Dates: start: 20190724, end: 20200605

REACTIONS (2)
  - Cardiac failure [Fatal]
  - Cardiac failure [Recovering/Resolving]

NARRATIVE: CASE EVENT DATE: 20200512
